FAERS Safety Report 20709410 (Version 1)
Quarter: 2022Q2

REPORT INFORMATION
  Report Type: Spontaneous
  Country: TR (occurrence: TR)
  Receive Date: 20220414
  Receipt Date: 20220414
  Transmission Date: 20220721
  Serious: Yes (Death, Other)
  Sender: FDA-Public Use
  Company Number: TR-ASTELLAS-2022US013505

PATIENT
  Age: 49 Year
  Sex: Male

DRUGS (1)
  1. AMPHOTERICIN B [Suspect]
     Active Substance: AMPHOTERICIN B
     Indication: Rhinocerebral mucormycosis
     Dosage: UNK UNK, UNKNOWN FREQ.
     Route: 065

REACTIONS (10)
  - Hypokalaemia [Unknown]
  - Cardiac arrest [Fatal]
  - Septic shock [Fatal]
  - Loss of consciousness [Unknown]
  - Respiratory distress [Unknown]
  - General physical health deterioration [Unknown]
  - Condition aggravated [Unknown]
  - Culture urine positive [Unknown]
  - C-reactive protein increased [Unknown]
  - Procalcitonin increased [Unknown]
